FAERS Safety Report 12930604 (Version 1)
Quarter: 2016Q4

REPORT INFORMATION
  Report Type: Spontaneous
  Country: US (occurrence: US)
  Receive Date: 20161111
  Receipt Date: 20161111
  Transmission Date: 20170207
  Serious: Yes (Other)
  Sender: FDA-Public Use
  Company Number: None

PATIENT
  Age: 58 Year
  Sex: Female
  Weight: 99 kg

DRUGS (12)
  1. DORYX MPC [Suspect]
     Active Substance: DOXYCYCLINE HYCLATE
     Indication: DRUG THERAPY
     Dosage: ?          QUANTITY:1 TABLET(S);?
     Route: 048
     Dates: start: 20161027, end: 20161103
  2. VITAMINS [Concomitant]
     Active Substance: VITAMINS
  3. VITAMIN B12 [Concomitant]
     Active Substance: CYANOCOBALAMIN
  4. VITAMIN B COMPLEX [Concomitant]
     Active Substance: CYANOCOBALAMIN\DEXPANTHENOL\NIACINAMIDE\PYRIDOXINE HYDROCHLORIDE\RIBOFLAVIN 5^-PHOSPHATE SODIUM\THIAMINE HYDROCHLORIDE\VITAMIN B COMPLEX
  5. BIEST [Concomitant]
     Active Substance: ESTRADIOL\ESTRIOL
  6. PROGEST [Concomitant]
  7. IRON [Concomitant]
     Active Substance: IRON
  8. LEVOTHYROXINE. [Concomitant]
     Active Substance: LEVOTHYROXINE
  9. D-3 [Concomitant]
     Active Substance: CHOLECALCIFEROL
  10. METRONIDAZOLE. [Suspect]
     Active Substance: METRONIDAZOLE
     Indication: COLITIS
     Dosage: ?          QUANTITY:1 TABLET(S);?
     Route: 048
     Dates: start: 20161103, end: 20161107
  11. FISH OIL [Concomitant]
     Active Substance: FISH OIL
  12. MINERALS [Concomitant]
     Active Substance: MINERALS

REACTIONS (6)
  - Asthenia [None]
  - Diarrhoea [None]
  - Head discomfort [None]
  - Musculoskeletal stiffness [None]
  - Coordination abnormal [None]
  - Confusional state [None]

NARRATIVE: CASE EVENT DATE: 20161103
